FAERS Safety Report 4583856-1 (Version None)
Quarter: 2005Q1

REPORT INFORMATION
  Report Type: 
  Country: None (occurrence: None)
  Receive Date: 20050216
  Receipt Date: 20050209
  Transmission Date: 20050727
  Serious: Yes (Life-Threatening, Hospitalization)
  Sender: FDA-Public Use
  Company Number: US-BRISTOL-MYERS SQUIBB COMPANY-12855771

PATIENT
  Age: 71 Year
  Sex: Female

DRUGS (4)
  1. ERBITUX [Suspect]
     Indication: COLON CANCER METASTATIC
     Dosage: DISCONTINUED 10 MINUTES INTO INFUSION
     Route: 042
     Dates: start: 20050131
  2. BENADRYL [Concomitant]
     Indication: PREMEDICATION
     Route: 042
     Dates: start: 20050131, end: 20050131
  3. ZANTAC [Concomitant]
     Indication: PREMEDICATION
     Route: 042
     Dates: start: 20050131, end: 20050131
  4. TYLENOL [Concomitant]
     Indication: PREMEDICATION
     Route: 048
     Dates: start: 20050131, end: 20050131

REACTIONS (12)
  - BRUXISM [None]
  - CARDIO-RESPIRATORY ARREST [None]
  - DYSPNOEA [None]
  - ERYTHEMA [None]
  - EYE SWELLING [None]
  - FEELING ABNORMAL [None]
  - HYPOTENSION [None]
  - INJECTION SITE REACTION [None]
  - LOCALISED OEDEMA [None]
  - OCULAR HYPERAEMIA [None]
  - SWOLLEN TONGUE [None]
  - TACHYCARDIA [None]
